FAERS Safety Report 7196411-4 (Version None)
Quarter: 2010Q4

REPORT INFORMATION
  Report Type: 
  Country: None (occurrence: None)
  Receive Date: 20101223
  Receipt Date: 20101025
  Transmission Date: 20110411
  Serious: No
  Sender: FDA-Public Use
  Company Number: US-AMGEN-KDL442826

PATIENT

DRUGS (6)
  1. ENBREL [Suspect]
     Indication: RHEUMATOID ARTHRITIS
     Dosage: 50 MG, QWK
     Route: 058
     Dates: start: 20090815
  2. MEDROL [Concomitant]
     Dosage: UNK
     Route: 048
     Dates: start: 20060905
  3. PLAQUENIL [Suspect]
     Dosage: UNK
     Dates: start: 20051110
  4. LISINOPRIL [Suspect]
     Dosage: 10 MG, UNK
     Route: 048
     Dates: start: 20080901
  5. HYDROCODONE BITARTRATE [Suspect]
     Dosage: UNK UNK, BID
     Route: 048
     Dates: start: 20090101
  6. COUMADIN [Suspect]
     Dosage: UNK
     Route: 048
     Dates: start: 20090101

REACTIONS (1)
  - FATIGUE [None]
